FAERS Safety Report 4650605-8 (Version None)
Quarter: 2005Q2

REPORT INFORMATION
  Report Type: 
  Country: None (occurrence: None)
  Receive Date: 20050503
  Receipt Date: 20050419
  Transmission Date: 20051028
  Serious: Yes (Other)
  Sender: FDA-Public Use
  Company Number: FR-JNJFOC-20050404378

PATIENT
  Age: 20 Year
  Sex: Male

DRUGS (2)
  1. REMICADE [Suspect]
     Indication: CROHN'S DISEASE
     Dosage: PATIENT RECEIVED REMICADE FOR 2 AND A HALF YEARS.
     Route: 042
  2. METHOTREXATE [Suspect]
     Indication: CROHN'S DISEASE

REACTIONS (1)
  - HERPES ZOSTER [None]
